FAERS Safety Report 6012324-5 (Version None)
Quarter: 2008Q4

REPORT INFORMATION
  Report Type: 
  Country: None (occurrence: None)
  Receive Date: 20081218
  Receipt Date: 20080909
  Transmission Date: 20090506
  Serious: No
  Sender: FDA-Public Use
  Company Number: US-ASTRAZENECA-2008UW12202

PATIENT
  Sex: Female
  Weight: 59 kg

DRUGS (5)
  1. SYMBICORT [Suspect]
     Indication: CHRONIC OBSTRUCTIVE PULMONARY DISEASE
     Dosage: 160/4.5 UG - 2 PUFFS BID
     Route: 055
     Dates: start: 20080612
  2. SYMBICORT [Suspect]
     Indication: ASTHMA
     Dosage: 160/4.5 UG - 2 PUFFS BID
     Route: 055
     Dates: start: 20080612
  3. SYMBICORT [Suspect]
     Dosage: 160/4.5 UG - 2 PUFFS BID
     Route: 055
     Dates: start: 20080401
  4. SYMBICORT [Suspect]
     Dosage: 160/4.5 UG - 2 PUFFS BID
     Route: 055
     Dates: start: 20080401
  5. ALBUTEROL [Concomitant]

REACTIONS (2)
  - DRUG INEFFECTIVE [None]
  - DYSPNOEA [None]
